FAERS Safety Report 21408741 (Version 1)
Quarter: 2022Q4

REPORT INFORMATION
  Report Type: Report from Study
  Country: FR (occurrence: None)
  Receive Date: 20221004
  Receipt Date: 20221004
  Transmission Date: 20230113
  Serious: Yes (Hospitalization)
  Sender: FDA-Public Use
  Company Number: 2022A276484

PATIENT
  Age: 896 Month
  Sex: Male

DRUGS (9)
  1. DURVALUMAB [Suspect]
     Active Substance: DURVALUMAB
     Indication: Pancreatic carcinoma metastatic
     Route: 042
     Dates: start: 20220414
  2. DURVALUMAB [Suspect]
     Active Substance: DURVALUMAB
     Indication: Pancreatic carcinoma metastatic
     Route: 042
     Dates: start: 20220707, end: 20220801
  3. SELUMETINIB [Suspect]
     Active Substance: SELUMETINIB
     Indication: Pancreatic carcinoma metastatic
     Route: 048
     Dates: start: 20220414
  4. SELUMETINIB [Suspect]
     Active Substance: SELUMETINIB
     Indication: Pancreatic carcinoma metastatic
     Route: 048
     Dates: start: 20220727, end: 20220801
  5. SILODOSIN [Concomitant]
     Active Substance: SILODOSIN
     Route: 065
  6. DUTASTERIDE [Concomitant]
     Active Substance: DUTASTERIDE
     Route: 065
  7. LANTUS [Concomitant]
     Active Substance: INSULIN GLARGINE
     Indication: Diabetes mellitus
     Route: 065
  8. NOVORAPID [Concomitant]
     Active Substance: INSULIN ASPART
     Indication: Diabetes mellitus
     Route: 065
  9. RESITUBE 75 [Concomitant]
     Indication: Thrombosis prophylaxis
     Route: 065

REACTIONS (1)
  - Gastric stenosis [Recovered/Resolved]

NARRATIVE: CASE EVENT DATE: 20220728
